FAERS Safety Report 22355447 (Version 1)
Quarter: 2023Q2

REPORT INFORMATION
  Report Type: Spontaneous
  Country: US (occurrence: US)
  Receive Date: 20230523
  Receipt Date: 20230523
  Transmission Date: 20230721
  Serious: Yes (Death, Hospitalization)
  Sender: FDA-Public Use
  Company Number: US-MYLANLABS-2023M1053785

PATIENT
  Age: 38 Year
  Sex: Male

DRUGS (5)
  1. HEPARIN [Suspect]
     Active Substance: HEPARIN SODIUM
     Indication: Ischaemic stroke
     Dosage: UNK, INFUSION
     Route: 042
  2. ATORVASTATIN [Suspect]
     Active Substance: ATORVASTATIN
     Indication: Ischaemic stroke
     Dosage: UNK
     Route: 065
  3. ALTEPLASE [Suspect]
     Active Substance: ALTEPLASE
     Indication: Ischaemic stroke
     Dosage: UNK
     Route: 065
  4. ASPIRIN [Suspect]
     Active Substance: ASPIRIN
     Indication: Ischaemic stroke
     Dosage: UNK
     Route: 065
  5. CLOPIDOGREL [Suspect]
     Active Substance: CLOPIDOGREL BISULFATE
     Indication: Ischaemic stroke
     Dosage: UNK
     Route: 065

REACTIONS (1)
  - Drug ineffective [Fatal]
